FAERS Safety Report 8081569-5 (Version None)
Quarter: 2012Q1

REPORT INFORMATION
  Report Type: 
  Country: None (occurrence: None)
  Receive Date: 20120130
  Receipt Date: 20120126
  Transmission Date: 20120608
  Serious: Yes (Other)
  Sender: FDA-Public Use
  Company Number: US-ROCHE-783990

PATIENT
  Sex: Male
  Weight: 61.29 kg

DRUGS (2)
  1. ACCUTANE [Suspect]
     Dates: start: 20020220, end: 20020301
  2. ACCUTANE [Suspect]
     Indication: ACNE
     Route: 048

REACTIONS (5)
  - CROHN'S DISEASE [None]
  - IRRITABLE BOWEL SYNDROME [None]
  - INFLAMMATORY BOWEL DISEASE [None]
  - COLITIS ULCERATIVE [None]
  - STRESS [None]
